FAERS Safety Report 9472985 (Version 2)
Quarter: 2013Q3

REPORT INFORMATION
  Report Type: Report from Study
  Country: DE (occurrence: DE)
  Receive Date: 20130823
  Receipt Date: 20130823
  Transmission Date: 20140515
  Serious: Yes (Hospitalization)
  Sender: FDA-Public Use
  Company Number: DE-PFIZER INC-DE-WYE-H06901308

PATIENT
  Age: 56 Year
  Sex: Female
  Weight: 83 kg

DRUGS (3)
  1. RAPAMUNE [Suspect]
     Indication: PROPHYLAXIS AGAINST TRANSPLANT REJECTION
     Dosage: 2 MG, 1X/DAY
     Route: 048
     Dates: start: 20071219
  2. PROGRAF [Suspect]
     Indication: PROPHYLAXIS AGAINST TRANSPLANT REJECTION
     Dosage: UNK
     Route: 065
     Dates: start: 20071120
  3. PROGRAF [Suspect]
     Indication: IMMUNOSUPPRESSION

REACTIONS (1)
  - Headache [Recovered/Resolved]
